FAERS Safety Report 5273256-3 (Version None)
Quarter: 2007Q1

REPORT INFORMATION
  Report Type: 
  Country: None (occurrence: None)
  Receive Date: 20070319
  Receipt Date: 20070309
  Transmission Date: 20070707
  Serious: Yes (Other)
  Sender: FDA-Public Use
  Company Number: 2007AP000289

PATIENT
  Sex: Female

DRUGS (4)
  1. PAROXETINE HCL [Suspect]
     Dates: start: 19971201
  2. LITHIUM CARBONATE [Concomitant]
  3. THIORIDAZINE HCL [Concomitant]
  4. ZOPICLONE (ZOPICLONE) [Concomitant]

REACTIONS (10)
  - ABNORMAL DREAMS [None]
  - COMPLETED SUICIDE [None]
  - CRYING [None]
  - DISTURBANCE IN ATTENTION [None]
  - DRUG WITHDRAWAL SYNDROME [None]
  - OVERDOSE [None]
  - SELF-INJURIOUS IDEATION [None]
  - SOMNOLENCE [None]
  - SUICIDE ATTEMPT [None]
  - TEARFULNESS [None]
